FAERS Safety Report 25781687 (Version 1)
Quarter: 2025Q3

REPORT INFORMATION
  Report Type: Spontaneous
  Country: JP (occurrence: JP)
  Receive Date: 20250909
  Receipt Date: 20250909
  Transmission Date: 20251020
  Serious: Yes (Other)
  Sender: ORGANON
  Company Number: JP-ORGANON-O2509JPN000603

PATIENT
  Age: 41 Year
  Sex: Male

DRUGS (1)
  1. PROPECIA [Suspect]
     Active Substance: FINASTERIDE
     Route: 048

REACTIONS (2)
  - Nasal polypectomy [Unknown]
  - Nasal polyps [Unknown]
